FAERS Safety Report 16955320 (Version 1)
Quarter: 2019Q4

REPORT INFORMATION
  Report Type: Spontaneous
  Country: US (occurrence: US)
  Receive Date: 20191023
  Receipt Date: 20191023
  Transmission Date: 20200122
  Serious: No
  Sender: FDA-Public Use
  Company Number: None

PATIENT
  Age: 60 Year
  Sex: Male
  Weight: 78.75 kg

DRUGS (1)
  1. TELMISARTAN. [Suspect]
     Active Substance: TELMISARTAN
     Route: 048
     Dates: start: 20190402, end: 20190416

REACTIONS (3)
  - Anxiety [None]
  - Depression [None]
  - Disturbance in attention [None]

NARRATIVE: CASE EVENT DATE: 20190402
